FAERS Safety Report 9070239 (Version 1)
Quarter: 2013Q1

REPORT INFORMATION
  Report Type: Report from Study
  Country: US (occurrence: US)
  Receive Date: 20130129
  Receipt Date: 20130129
  Transmission Date: 20140127
  Serious: No
  Sender: FDA-Public Use
  Company Number: US-ABBOTT-12P-163-0921348-00

PATIENT
  Sex: Female
  Weight: 58.11 kg

DRUGS (13)
  1. HUMIRA 40 MG/0.8 ML PEN [Suspect]
     Indication: RHEUMATOID ARTHRITIS
     Dates: start: 20120207
  2. PREDNISONE [Concomitant]
     Indication: RHEUMATOID ARTHRITIS
  3. ZETIA [Concomitant]
     Indication: BLOOD CHOLESTEROL
  4. CRESTOR [Concomitant]
     Indication: BLOOD CHOLESTEROL
  5. TRICOR [Concomitant]
     Indication: BLOOD CHOLESTEROL
  6. METFORMIN [Concomitant]
     Indication: DIABETES MELLITUS
  7. JANUVIA [Concomitant]
     Indication: DIABETES MELLITUS
  8. NORVASC [Concomitant]
     Indication: BLOOD PRESSURE
  9. SPIRONOLACTONE [Concomitant]
     Indication: PRODUCT USED FOR UNKNOWN INDICATION
  10. SYNTHROID [Concomitant]
     Indication: THYROID THERAPY
  11. CALCIUM CITRATE [Concomitant]
     Indication: SUPPLEMENTATION THERAPY
  12. VITAMIN D3 [Concomitant]
     Indication: SUPPLEMENTATION THERAPY
  13. PRILOSEC [Concomitant]
     Indication: PRODUCT USED FOR UNKNOWN INDICATION

REACTIONS (2)
  - Macule [Not Recovered/Not Resolved]
  - Macule [Not Recovered/Not Resolved]
